FAERS Safety Report 24892431 (Version 2)
Quarter: 2025Q1

REPORT INFORMATION
  Report Type: Spontaneous
  Country: US (occurrence: US)
  Receive Date: 20250128
  Receipt Date: 20250207
  Transmission Date: 20250408
  Serious: Yes (Hospitalization)
  Sender: TEVA
  Company Number: US-TEVA-VS-3289758

PATIENT
  Age: 71 Year
  Sex: Male

DRUGS (1)
  1. LACTULOSE [Suspect]
     Active Substance: LACTULOSE
     Indication: Ammonia increased
     Route: 054

REACTIONS (3)
  - Rectal haemorrhage [Recovering/Resolving]
  - Thrombosis [Recovering/Resolving]
  - Shock haemorrhagic [Recovering/Resolving]
